FAERS Safety Report 10208324 (Version 3)
Quarter: 2015Q2

REPORT INFORMATION
  Report Type: Spontaneous
  Country: US (occurrence: US)
  Receive Date: 20140530
  Receipt Date: 20150519
  Transmission Date: 20150821
  Serious: Yes (Death, Other)
  Sender: FDA-Public Use
  Company Number: US-NAPPMUNDI-USA-2013-0105205

PATIENT
  Age: 46 Year
  Sex: Male

DRUGS (5)
  1. OXYCODONE HYDROCHLORIDE (SIMILAR TO NDA 22-272) [Suspect]
     Active Substance: OXYCODONE HYDROCHLORIDE
     Indication: DRUG ABUSE
     Route: 048
  2. HEROIN [Suspect]
     Active Substance: DIACETYLMORPHINE
     Indication: DRUG ABUSE
     Route: 065
  3. PHENCYCLIDINE [Suspect]
     Active Substance: PHENCYCLIDINE
     Indication: DRUG ABUSE
     Route: 065
  4. MORPHINE SULFATE (SIMILAR TO NDA 19-516) [Suspect]
     Active Substance: MORPHINE SULFATE
     Indication: DRUG ABUSE
     Route: 048
  5. XANAX [Suspect]
     Active Substance: ALPRAZOLAM
     Indication: DRUG ABUSE
     Route: 048

REACTIONS (6)
  - Cardiomegaly [Fatal]
  - Euphoric mood [Unknown]
  - Obesity [Unknown]
  - Overdose [Fatal]
  - Road traffic accident [Unknown]
  - Substance abuse [Unknown]

NARRATIVE: CASE EVENT DATE: 20130113
